FAERS Safety Report 6678063-2 (Version None)
Quarter: 2010Q2

REPORT INFORMATION
  Report Type: 
  Country: None (occurrence: None)
  Receive Date: 20100412
  Receipt Date: 20100406
  Transmission Date: 20101027
  Serious: Yes (Death, Other)
  Sender: FDA-Public Use
  Company Number: PHHY2010CA21374

PATIENT
  Sex: Female
  Weight: 61.8 kg

DRUGS (2)
  1. EXELON [Suspect]
     Dosage: PATCH 5
     Route: 062
     Dates: start: 20090330
  2. EXELON [Suspect]
     Dosage: PATCH 10

REACTIONS (2)
  - CEREBROVASCULAR ACCIDENT [None]
  - DEATH [None]
